FAERS Safety Report 7422697-4 (Version None)
Quarter: 2011Q2

REPORT INFORMATION
  Report Type: 
  Country: None (occurrence: None)
  Receive Date: 20110419
  Receipt Date: 20110411
  Transmission Date: 20111010
  Serious: Yes (Death)
  Sender: FDA-Public Use
  Company Number: FR-AMGEN-FRASP2011018903

PATIENT
  Sex: Female

DRUGS (4)
  1. ARANESP [Suspect]
     Dosage: 150 A?G, QWK
  2. ARANESP [Suspect]
     Indication: ANAEMIA OF MALIGNANT DISEASE
     Dosage: 500 A?G, UNK
  3. GRANOCYTE                          /01003403/ [Concomitant]
  4. NEULASTA [Suspect]
     Indication: CHEMOTHERAPY

REACTIONS (2)
  - BONE PAIN [None]
  - BRONCHIAL HAEMORRHAGE [None]
